FAERS Safety Report 21057612 (Version 1)
Quarter: 2022Q3

REPORT INFORMATION
  Report Type: Spontaneous
  Country: FR (occurrence: FR)
  Receive Date: 20220708
  Receipt Date: 20220708
  Transmission Date: 20221027
  Serious: Yes (Hospitalization)
  Sender: FDA-Public Use
  Company Number: None

PATIENT
  Age: 65 Year
  Sex: Male
  Weight: 61 kg

DRUGS (21)
  1. CLINDAMYCIN HYDROCHLORIDE [Suspect]
     Active Substance: CLINDAMYCIN HYDROCHLORIDE
     Indication: Lung disorder
     Dosage: 1800 MG, 1X/DAY
     Route: 048
     Dates: start: 20220513, end: 20220517
  2. RIFAMPIN [Suspect]
     Active Substance: RIFAMPIN
     Indication: Lung disorder
     Route: 048
     Dates: start: 20220517, end: 20220519
  3. CEFAZOLIN [Suspect]
     Active Substance: CEFAZOLIN
     Indication: Lung disorder
     Route: 042
     Dates: start: 20220506, end: 20220513
  4. AMOXICILLIN [Suspect]
     Active Substance: AMOXICILLIN
     Indication: Lung disorder
     Route: 048
     Dates: start: 20220504, end: 20220506
  5. METRONIDAZOLE [Suspect]
     Active Substance: METRONIDAZOLE
     Indication: Lung disorder
     Route: 048
     Dates: start: 20220506, end: 20220510
  6. CLAVULANIC ACID [Suspect]
     Active Substance: CLAVULANIC ACID
     Indication: Lung disorder
     Dosage: 2 DF, 1X/DAY
     Route: 048
     Dates: start: 20220504, end: 20220506
  7. OFLOXACIN [Suspect]
     Active Substance: OFLOXACIN
     Indication: Lung disorder
     Route: 048
     Dates: start: 20220513, end: 20220517
  8. FUMARATE FERREUX TM [Concomitant]
  9. SYMBICORT [Concomitant]
     Active Substance: BUDESONIDE\FORMOTEROL FUMARATE DIHYDRATE
  10. CARVEDILOL [Concomitant]
     Active Substance: CARVEDILOL
  11. NICOTINAMIDE [Concomitant]
     Active Substance: NIACINAMIDE
  12. TIOTROPIUM [Concomitant]
     Active Substance: TIOTROPIUM
  13. FOLIC ACID [Concomitant]
     Active Substance: FOLIC ACID
  14. ATORVASTATIN [Concomitant]
     Active Substance: ATORVASTATIN
  15. PANTOPRAZOLE [Concomitant]
     Active Substance: PANTOPRAZOLE
  16. POTASSIUM CHLORIDE [Concomitant]
     Active Substance: POTASSIUM CHLORIDE
  17. PERINDOPRIL [Concomitant]
     Active Substance: PERINDOPRIL
  18. FUROSEMIDE [Concomitant]
     Active Substance: FUROSEMIDE
  19. DIAZEPAM [Concomitant]
     Active Substance: DIAZEPAM
  20. WARFARIN SODIUM [Concomitant]
     Active Substance: WARFARIN SODIUM
  21. PAROXETINE HYDROCHLORIDE [Concomitant]
     Active Substance: PAROXETINE HYDROCHLORIDE

REACTIONS (2)
  - Condition aggravated [Recovered/Resolved]
  - Drug reaction with eosinophilia and systemic symptoms [Recovered/Resolved]

NARRATIVE: CASE EVENT DATE: 20220517
